FAERS Safety Report 10176161 (Version 1)
Quarter: 2014Q2

REPORT INFORMATION
  Report Type: Spontaneous
  Country: US (occurrence: None)
  Receive Date: 20140514
  Receipt Date: 20140514
  Transmission Date: 20141212
  Serious: Yes (Other)
  Sender: FDA-Public Use
  Company Number: PI-10346

PATIENT
  Age: 53 Year
  Sex: Female

DRUGS (2)
  1. CHLORAPREP (2% CHG/70% IPA) WITH FD + C YELLOW# 6 [Suspect]
     Indication: PREOPERATIVE CARE
     Route: 061
     Dates: start: 20140415
  2. CHLORAPREP (2% CHG/70% IPA) WITH FD + C YELLOW# 6 [Suspect]
     Route: 061
     Dates: start: 20140415

REACTIONS (13)
  - Rash pruritic [None]
  - Dyspnoea [None]
  - Musculoskeletal stiffness [None]
  - Local swelling [None]
  - Urticaria [None]
  - Erythema [None]
  - Swelling face [None]
  - Pain [None]
  - Cough [None]
  - Urticaria [None]
  - Application site reaction [None]
  - Application site erythema [None]
  - Wheezing [None]
